FAERS Safety Report 7384938-1 (Version None)
Quarter: 2011Q1

REPORT INFORMATION
  Report Type: 
  Country: None (occurrence: None)
  Receive Date: 20110323
  Receipt Date: 20110309
  Transmission Date: 20110831
  Serious: Yes (Hospitalization)
  Sender: FDA-Public Use
  Company Number: JPI-P-013988

PATIENT
  Age: 43 Year
  Sex: Female

DRUGS (13)
  1. HYOSCYAMINE [Concomitant]
  2. SIMVASTATIN [Concomitant]
  3. LORAZEPAM [Concomitant]
  4. OXYCODONE AND ACETAMINOPHEN [Concomitant]
  5. ZONISAMIDE [Concomitant]
  6. ASPIRIN [Concomitant]
  7. XYREM [Suspect]
     Indication: CATAPLEXY
     Dosage: 2 GM (1 GM, 2 IN 1 D), ORAL
     Route: 048
     Dates: start: 20100913, end: 20100901
  8. ADDERALL 10 [Concomitant]
  9. CLONAZEPAM [Concomitant]
  10. TRAZODONE [Concomitant]
  11. HYDROXYZINE [Concomitant]
  12. ROPINIROLE HYDROCHLORIDE [Concomitant]
  13. DESVANLAFAXINE [Concomitant]

REACTIONS (7)
  - SUBCUTANEOUS ABSCESS [None]
  - DEHYDRATION [None]
  - CLOSTRIDIAL INFECTION [None]
  - NASAL SEPTUM ULCERATION [None]
  - STAPHYLOCOCCAL INFECTION [None]
  - DEPRESSION [None]
  - HALLUCINATION [None]
